FAERS Safety Report 15006471 (Version 1)
Quarter: 2018Q2

REPORT INFORMATION
  Report Type: Spontaneous
  Country: GB (occurrence: GB)
  Receive Date: 20180613
  Receipt Date: 20180613
  Transmission Date: 20180711
  Serious: Yes (Other)
  Sender: FDA-Public Use
  Company Number: GB-TEVA-2018-GB-905102

PATIENT
  Age: 55 Year
  Sex: Female
  Weight: 65 kg

DRUGS (14)
  1. PIROXICAM. [Suspect]
     Active Substance: PIROXICAM
     Route: 065
     Dates: start: 20180325
  2. CLENIL MODULITE [Concomitant]
     Active Substance: BECLOMETHASONE DIPROPIONATE
     Dosage: 4 DOSAGE FORMS DAILY;
     Route: 055
     Dates: start: 20171120
  3. SODIUM CHLORIDE. [Concomitant]
     Active Substance: SODIUM CHLORIDE
     Dosage: AS DIRECTEDS
     Route: 050
     Dates: start: 20180410
  4. CORSODYL [Concomitant]
     Active Substance: CHLORHEXIDINE GLUCONATE
     Dosage: AS DIRECTED BY HOSPITAL
     Dates: start: 20180410
  5. OMEPRAZOLE. [Concomitant]
     Active Substance: OMEPRAZOLE
     Dosage: 1 DOSAGE FORMS DAILY;
     Route: 065
     Dates: start: 20170801
  6. MACROGOL [Concomitant]
     Active Substance: POLYETHYLENE GLYCOLS
     Route: 065
     Dates: start: 20180410
  7. FORTISIP [Concomitant]
     Active Substance: CARBOHYDRATES\FATTY ACIDS\MINERALS\PROTEIN\VITAMINS
     Dosage: USE AS DIRECTED
     Route: 065
     Dates: start: 20180410
  8. SALBUTAMOL [Concomitant]
     Active Substance: ALBUTEROL
     Route: 055
     Dates: start: 20170801
  9. DERMOL [Concomitant]
     Active Substance: BENZALKONIUM CHLORIDE\CHLORHEXIDINE HYDROCHLORIDE\ISOPROPYL MYRISTATE\PARAFFIN
     Dosage: APPLY AS NEEDED OR USE AS SOAP SUBSTITUTE
     Route: 065
     Dates: start: 20180410
  10. LORATADINE. [Concomitant]
     Active Substance: LORATADINE
     Dosage: 1 DOSAGE FORMS DAILY;
     Dates: start: 20170801
  11. TRAMADOL. [Concomitant]
     Active Substance: TRAMADOL
     Dosage: 1 OR 2 FOUR TIMES DAILY AS REQUIRED
     Route: 065
     Dates: start: 20171020
  12. HYLO-TEAR [Concomitant]
     Dosage: TO BOTH EYES
     Route: 050
     Dates: start: 20180410
  13. ZOMORPH [Concomitant]
     Active Substance: MORPHINE SULFATE
     Dosage: REDUCING TO ONE EVERY 12 HOURS
     Dates: start: 20180410
  14. GABAPENTIN. [Concomitant]
     Active Substance: GABAPENTIN
     Dosage: 3 DOSAGE FORMS DAILY;
     Dates: start: 20170801

REACTIONS (2)
  - Stevens-Johnson syndrome [Recovering/Resolving]
  - Acute kidney injury [Recovered/Resolved]

NARRATIVE: CASE EVENT DATE: 20180411
